FAERS Safety Report 10226988 (Version 1)
Quarter: 2014Q2

REPORT INFORMATION
  Report Type: Spontaneous
  Country: IN (occurrence: IN)
  Receive Date: 20140610
  Receipt Date: 20140610
  Transmission Date: 20141212
  Serious: Yes (Disabling)
  Sender: FDA-Public Use
  Company Number: IN-009507513-1406IND004272

PATIENT
  Age: 35 Year
  Sex: Female
  Weight: 65 kg

DRUGS (1)
  1. SITAGLIPTIN PHOSPHATE [Suspect]
     Dosage: UNK
     Route: 048

REACTIONS (1)
  - Polyarthritis [Not Recovered/Not Resolved]
